FAERS Safety Report 5303927-1 (Version None)
Quarter: 2007Q1

REPORT INFORMATION
  Report Type: 
  Country: None (occurrence: None)
  Receive Date: 20070201
  Receipt Date: 20061120
  Transmission Date: 20070707
  Serious: No
  Sender: FDA-Public Use
  Company Number: 2006PV025593

PATIENT
  Age: 71 Year
  Sex: Female
  Weight: 73.4827 kg

DRUGS (9)
  1. BYETTA [Suspect]
     Indication: DIABETES MELLITUS NON-INSULIN-DEPENDENT
     Dosage: SEE IMAGE
     Route: 058
  2. LANTUS [Concomitant]
  3. AVANDAMET [Concomitant]
  4. DIOVAN HCT [Concomitant]
  5. LIPITOR [Concomitant]
  6. ASPIRIN [Concomitant]
  7. NEXIUM [Concomitant]
  8. ACTONEL [Concomitant]
  9. CALCIUM CHLORIDE [Concomitant]

REACTIONS (3)
  - ALOPECIA [None]
  - PRURITUS [None]
  - WEIGHT DECREASED [None]
